FAERS Safety Report 22199163 (Version 1)
Quarter: 2023Q2

REPORT INFORMATION
  Report Type: Spontaneous
  Country: US (occurrence: US)
  Receive Date: 20230411
  Receipt Date: 20230411
  Transmission Date: 20230722
  Serious: No
  Sender: FDA-Public Use
  Company Number: US-JNJFOC-20230409223

PATIENT

DRUGS (5)
  1. TREMFYA [Interacting]
     Active Substance: GUSELKUMAB
     Indication: Product used for unknown indication
     Route: 065
  2. TREMFYA [Interacting]
     Active Substance: GUSELKUMAB
  3. TREMFYA [Interacting]
     Active Substance: GUSELKUMAB
  4. RITUXAN [Interacting]
     Active Substance: RITUXIMAB
     Indication: Mantle cell lymphoma
     Route: 065
  5. METHOTREXATE [Concomitant]
     Active Substance: METHOTREXATE

REACTIONS (1)
  - Drug interaction [Unknown]
